FAERS Safety Report 8335172-X (Version None)
Quarter: 2012Q2

REPORT INFORMATION
  Report Type: 
  Country: None (occurrence: None)
  Receive Date: 20120503
  Receipt Date: 20120427
  Transmission Date: 20120825
  Serious: Yes (Life-Threatening, Hospitalization)
  Sender: FDA-Public Use
  Company Number: GB-PFIZER INC-2012104350

PATIENT
  Age: 42 Year
  Sex: Female

DRUGS (12)
  1. METHOTREXATE SODIUM [Suspect]
     Route: 048
  2. METRONIDAZOLE [Concomitant]
  3. SULFASALAZINE [Suspect]
     Route: 048
  4. OMEPRAZOLE [Suspect]
     Dosage: 20 MG, 2X/DAY
     Route: 048
  5. BENZYDAMINE [Concomitant]
  6. NYSTATIN [Concomitant]
  7. GABAPENTIN [Suspect]
     Dosage: 600 MG, 4X/DAY
     Route: 048
  8. HYDROXYCHLOROQUINE [Suspect]
     Indication: RHEUMATOID ARTHRITIS
     Route: 048
  9. SCHERIPROCT [Concomitant]
  10. VENLAFAXINE HCL [Suspect]
     Dosage: 75 MG, 2X/DAY
     Route: 048
  11. FLUCLOXACILLIN [Concomitant]
  12. MICONAZOLE [Concomitant]

REACTIONS (6)
  - HAEMATEMESIS [None]
  - DIARRHOEA [None]
  - CONTUSION [None]
  - FULL BLOOD COUNT ABNORMAL [None]
  - ABDOMINAL PAIN [None]
  - THROMBOCYTOPENIA [None]
